FAERS Safety Report 22292349 (Version 1)
Quarter: 2023Q2

REPORT INFORMATION
  Report Type: Spontaneous
  Country: US (occurrence: US)
  Receive Date: 20230508
  Receipt Date: 20230508
  Transmission Date: 20230722
  Serious: No
  Sender: FDA-Public Use
  Company Number: US-AUROBINDO-AUR-APL-2022-039602

PATIENT
  Sex: Female

DRUGS (1)
  1. DEXTROMETHORPHAN\GUAIFENESIN [Suspect]
     Active Substance: DEXTROMETHORPHAN\GUAIFENESIN
     Indication: Product used for unknown indication
     Dosage: UNK
     Route: 065

REACTIONS (1)
  - Accidental overdose [Unknown]
